FAERS Safety Report 9631718 (Version 1)
Quarter: 2013Q4

REPORT INFORMATION
  Report Type: Spontaneous
  Country: FR (occurrence: FR)
  Receive Date: 20131018
  Receipt Date: 20131018
  Transmission Date: 20140711
  Serious: Yes (Death)
  Sender: FDA-Public Use
  Company Number: FR-SA-2013SA101958

PATIENT
  Age: 92 Year
  Sex: Male

DRUGS (8)
  1. PLAVIX [Suspect]
     Indication: PRODUCT USED FOR UNKNOWN INDICATION
     Route: 048
     Dates: start: 201202, end: 20130809
  2. LASILIX [Concomitant]
     Route: 048
     Dates: start: 201202
  3. ATARAX [Concomitant]
     Route: 048
     Dates: start: 201202, end: 20130809
  4. LANZOR [Concomitant]
     Route: 048
     Dates: start: 201202
  5. TRANSIPEG [Concomitant]
     Route: 048
  6. LANSOYL [Concomitant]
     Route: 048
  7. OPHTASILOXANE [Concomitant]
  8. CHIBRO-CADRON [Concomitant]
     Route: 048

REACTIONS (2)
  - Convulsion [Fatal]
  - Subdural haematoma [Fatal]
